FAERS Safety Report 7865248-2 (Version None)
Quarter: 2011Q4

REPORT INFORMATION
  Report Type: 
  Country: None (occurrence: None)
  Receive Date: 20111028
  Receipt Date: 20101108
  Transmission Date: 20120403
  Serious: No
  Sender: FDA-Public Use
  Company Number: US-GLAXOSMITHKLINE-A0891315A

PATIENT
  Age: 71 Year
  Sex: Female
  Weight: 64.1 kg

DRUGS (11)
  1. TOPIRAMATE [Concomitant]
  2. FENOFIBRATE [Concomitant]
  3. LEVOXYL [Concomitant]
  4. TRAZODONE HYDROCHLORIDE [Concomitant]
  5. OMEPRAZOLE [Concomitant]
  6. METFORMIN HCL [Concomitant]
  7. OXYBUTYNIN [Concomitant]
  8. CITALOPRAM HYDROBROMIDE [Concomitant]
  9. JANUVIA [Concomitant]
  10. ADVAIR DISKUS 100/50 [Suspect]
     Indication: COUGH
     Dosage: 1PUFF TWICE PER DAY
     Route: 055
     Dates: start: 20101025, end: 20101101
  11. LOVASTATIN [Concomitant]

REACTIONS (2)
  - DYSPHONIA [None]
  - APHONIA [None]
